FAERS Safety Report 5678233-6 (Version None)
Quarter: 2008Q1

REPORT INFORMATION
  Report Type: 
  Country: None (occurrence: None)
  Receive Date: 20080320
  Receipt Date: 20080304
  Transmission Date: 20080703
  Serious: Yes (Hospitalization, Disabling)
  Sender: FDA-Public Use
  Company Number: ENT 2008-0016

PATIENT
  Age: 78 Year
  Sex: Male

DRUGS (8)
  1. COMTAN [Suspect]
     Indication: PARKINSON'S DISEASE
     Dosage: 100 MG (100 MG, 1 IN 1 D) ORAL
     Route: 048
     Dates: start: 20071207, end: 20071211
  2. PREDONINE [Concomitant]
  3. CARBIDOPA AND LEVODOPA [Concomitant]
  4. PANTOSIN [Concomitant]
  5. KAMAG G [Concomitant]
  6. HARNAL [Concomitant]
  7. URBETID [Concomitant]
  8. FAMOTIDINE [Concomitant]

REACTIONS (2)
  - CAROTID ARTERY STENOSIS [None]
  - CEREBRAL INFARCTION [None]
